FAERS Safety Report 18588577 (Version 1)
Quarter: 2020Q4

REPORT INFORMATION
  Report Type: Spontaneous
  Country: BR (occurrence: BR)
  Receive Date: 20201208
  Receipt Date: 20201208
  Transmission Date: 20210114
  Serious: Yes (Other)
  Sender: FDA-Public Use
  Company Number: BR-ASTRAZENECA-2020SF61745

PATIENT
  Sex: Female

DRUGS (1)
  1. OLAPARIB. [Suspect]
     Active Substance: OLAPARIB
     Indication: BREAST CANCER FEMALE
     Route: 048

REACTIONS (2)
  - Urine abnormality [Recovered/Resolved]
  - Malignant neoplasm progression [Not Recovered/Not Resolved]
